FAERS Safety Report 14128526 (Version 2)
Quarter: 2017Q4

REPORT INFORMATION
  Report Type: Spontaneous
  Country: IT (occurrence: IT)
  Receive Date: 20171026
  Receipt Date: 20171031
  Transmission Date: 20180321
  Serious: Yes (Hospitalization)
  Sender: FDA-Public Use
  Company Number: IT-TEVA-818338ACC

PATIENT
  Age: 71 Year
  Sex: Male

DRUGS (4)
  1. OLPRESS - 20 MG COMPRESSE RIVESTITE CON FILM - MENARINI INTERNATIONAL [Concomitant]
     Indication: PRODUCT USED FOR UNKNOWN INDICATION
     Route: 048
     Dates: start: 20120718
  2. CETIRIZINA TEVA - 10 MG COMPRESSE RIVESTITE CON FILM [Suspect]
     Active Substance: CETIRIZINE HYDROCHLORIDE
     Indication: RHINITIS ALLERGIC
     Dosage: 10 MILLIGRAM DAILY;
     Route: 048
     Dates: start: 20170913, end: 20170919
  3. CARDIOASPIRIN - 100 MG COMPRESSE GASTRORESISTENTI-BAYER S.P.A. [Concomitant]
     Indication: PRODUCT USED FOR UNKNOWN INDICATION
     Route: 048
     Dates: start: 20120718
  4. SIMVASTATINA SANDOZ - 20 MG COMPRESSE RIVESTITE CON FILM-SANDOZ S.P.A. [Concomitant]
     Indication: PRODUCT USED FOR UNKNOWN INDICATION
     Route: 048
     Dates: start: 20160606

REACTIONS (2)
  - Electrocardiogram QT prolonged [Recovered/Resolved]
  - Loss of consciousness [Recovered/Resolved]

NARRATIVE: CASE EVENT DATE: 20170919
